FAERS Safety Report 7960613-7 (Version None)
Quarter: 2011Q4

REPORT INFORMATION
  Report Type: 
  Country: None (occurrence: None)
  Receive Date: 20111206
  Receipt Date: 20111130
  Transmission Date: 20120403
  Serious: Yes (Hospitalization)
  Sender: FDA-Public Use
  Company Number: JP-MERCK-1111USA01887

PATIENT
  Age: 60 Year
  Sex: Female

DRUGS (18)
  1. AMARYL [Concomitant]
     Route: 048
     Dates: end: 20111024
  2. JANUVIA [Suspect]
     Route: 048
     Dates: start: 20110427, end: 20111003
  3. ASPIRIN [Concomitant]
     Dosage: ENTERIC PREPARATIONS
     Route: 048
     Dates: start: 20101001
  4. AMARYL [Concomitant]
     Route: 048
  5. ALLOPURINOL [Concomitant]
     Route: 048
     Dates: start: 20110105
  6. ZETIA [Concomitant]
     Route: 048
     Dates: start: 20101113
  7. TRICHLORMETHIAZIDE [Concomitant]
     Route: 048
     Dates: start: 20110105
  8. CARVEDILOL [Concomitant]
     Route: 048
  9. SIGMART [Concomitant]
     Route: 048
     Dates: start: 20110105
  10. EPADEL S [Concomitant]
     Route: 048
     Dates: start: 20110525
  11. CRESTOR [Concomitant]
     Route: 048
     Dates: start: 20110302
  12. CARVEDILOL [Concomitant]
     Route: 048
     Dates: start: 20101001
  13. LASIX [Concomitant]
     Route: 048
     Dates: start: 20101001
  14. GLUCOBAY [Concomitant]
     Route: 048
     Dates: start: 20110427
  15. ADALAT [Concomitant]
     Route: 048
     Dates: start: 20110427
  16. ALDACTONE [Concomitant]
     Dosage: PERORAL PREPARATIONS
     Route: 048
     Dates: start: 20110302
  17. AMARYL [Concomitant]
     Route: 048
     Dates: start: 20101001
  18. ENALAPRIL MALEATE [Concomitant]
     Route: 048

REACTIONS (2)
  - HAEMOLYTIC ANAEMIA [None]
  - CARDIAC FAILURE [None]
